FAERS Safety Report 10512045 (Version 1)
Quarter: 2014Q4

REPORT INFORMATION
  Report Type: Report from Study
  Country: US (occurrence: US)
  Receive Date: 20141010
  Receipt Date: 20141010
  Transmission Date: 20150528
  Serious: Yes (Hospitalization)
  Sender: FDA-Public Use
  Company Number: US-EXELIXIS-XL18414004826

PATIENT
  Age: 66 Year
  Sex: Female

DRUGS (1)
  1. XL184 [Suspect]
     Active Substance: CABOZANTINIB
     Indication: ENDOMETRIAL STROMAL SARCOMA
     Dosage: 60 MG, QD
     Route: 048
     Dates: start: 20140423, end: 20140720

REACTIONS (4)
  - Gastrointestinal fistula [Unknown]
  - Malignant neoplasm progression [None]
  - Endometrial cancer [None]
  - Abdominal infection [Recovered/Resolved]

NARRATIVE: CASE EVENT DATE: 20140721
